FAERS Safety Report 20168539 (Version 1)
Quarter: 2021Q4

REPORT INFORMATION
  Report Type: Spontaneous
  Country: US (occurrence: US)
  Receive Date: 20211210
  Receipt Date: 20211210
  Transmission Date: 20220303
  Serious: No
  Sender: FDA-Public Use
  Company Number: US-JNJFOC-20211165077

PATIENT
  Age: 2 Year
  Sex: Male

DRUGS (1)
  1. CHILDRENS MOTRIN [Suspect]
     Active Substance: IBUPROFEN
     Indication: Accidental exposure to product
     Route: 065

REACTIONS (1)
  - Accidental exposure to product by child [Unknown]
